FAERS Safety Report 7779735-9 (Version None)
Quarter: 2011Q3

REPORT INFORMATION
  Report Type: 
  Country: None (occurrence: None)
  Receive Date: 20110927
  Receipt Date: 20110914
  Transmission Date: 20111222
  Serious: Yes (Other)
  Sender: FDA-Public Use
  Company Number: US-UCBSA-041398

PATIENT
  Sex: Female

DRUGS (1)
  1. CIMZIA [Suspect]
     Dosage: STRENGTH: 200MG
     Route: 058
     Dates: start: 20110623, end: 20110816

REACTIONS (8)
  - JOINT SWELLING [None]
  - MUSCULOSKELETAL STIFFNESS [None]
  - CONTUSION [None]
  - PAIN [None]
  - DEPRESSION [None]
  - OEDEMA PERIPHERAL [None]
  - NAUSEA [None]
  - HYPOKINESIA [None]
